FAERS Safety Report 16595238 (Version 1)
Quarter: 2019Q3

REPORT INFORMATION
  Report Type: Spontaneous
  Country: US (occurrence: US)
  Receive Date: 20190718
  Receipt Date: 20190718
  Transmission Date: 20191004
  Serious: No
  Sender: FDA-Public Use
  Company Number: US-TEVA-2019-US-1078802

PATIENT
  Sex: Male

DRUGS (1)
  1. DEFERASIROX. [Suspect]
     Active Substance: DEFERASIROX
     Dosage: TABLETS FOR ORAL SUSPENSION; 500 MG
     Route: 048

REACTIONS (2)
  - Product solubility abnormal [Unknown]
  - Diarrhoea [Unknown]
